FAERS Safety Report 16798639 (Version 1)
Quarter: 2019Q3

REPORT INFORMATION
  Report Type: Spontaneous
  Country: AU (occurrence: AU)
  Receive Date: 20190912
  Receipt Date: 20190912
  Transmission Date: 20191005
  Serious: Yes (Hospitalization)
  Sender: FDA-Public Use
  Company Number: AU-MYLANLABS-2019M1084323

PATIENT
  Age: 42 Year
  Sex: Female

DRUGS (3)
  1. DESVENLAFAXINE SUCCINATE. [Suspect]
     Active Substance: DESVENLAFAXINE SUCCINATE
     Dosage: OVERDOSE [AMOUNT INGESTED NOT STATED].
     Route: 065
  2. DESVENLAFAXINE SUCCINATE. [Suspect]
     Active Substance: DESVENLAFAXINE SUCCINATE
     Indication: DEPRESSIVE SYMPTOM
     Dosage: 100 MILLIGRAM
     Route: 065
  3. DESVENLAFAXINE SUCCINATE. [Suspect]
     Active Substance: DESVENLAFAXINE SUCCINATE
     Dosage: 150 MILLIGRAM
     Route: 065

REACTIONS (4)
  - Confusional state [Recovered/Resolved]
  - Derealisation [Recovered/Resolved]
  - Intentional overdose [Unknown]
  - Depersonalisation/derealisation disorder [Recovered/Resolved]
